FAERS Safety Report 18637268 (Version 3)
Quarter: 2021Q1

REPORT INFORMATION
  Report Type: Report from Study
  Country: US (occurrence: US)
  Receive Date: 20201218
  Receipt Date: 20210126
  Transmission Date: 20210419
  Serious: No
  Sender: FDA-Public Use
  Company Number: US-BAYER-2020-280210

PATIENT
  Age: 65 Year
  Sex: Female

DRUGS (11)
  1. ZESTRIL [Concomitant]
     Active Substance: LISINOPRIL
     Dosage: UNK
  2. REGORAFENIB. [Suspect]
     Active Substance: REGORAFENIB
     Indication: GLIOBLASTOMA
     Dosage: 120 MG, QD (21 DAYS OF 28?DAY CYCLE)
     Route: 048
     Dates: start: 20201215
  3. ACTOS [Concomitant]
     Active Substance: PIOGLITAZONE HYDROCHLORIDE
     Dosage: UNK
  4. ACETAMINOPHEN;HYDROCODONE [Concomitant]
     Active Substance: ACETAMINOPHEN\HYDROCODONE
     Dosage: UNK
  5. REGORAFENIB. [Suspect]
     Active Substance: REGORAFENIB
     Indication: GLIOBLASTOMA
     Dosage: UNK
     Route: 048
     Dates: start: 20201215
  6. REGORAFENIB. [Suspect]
     Active Substance: REGORAFENIB
     Indication: GLIOBLASTOMA
     Dosage: 160 MG, QD (21 DAYS OF 28?DAY CYCLE)
     Route: 048
     Dates: start: 20201201, end: 20201208
  7. REGORAFENIB. [Suspect]
     Active Substance: REGORAFENIB
     Indication: GLIOBLASTOMA
     Dosage: UNK
     Route: 048
     Dates: start: 20201215
  8. KEPPRA [Concomitant]
     Active Substance: LEVETIRACETAM
     Dosage: UNK
     Dates: start: 20200414
  9. REGORAFENIB. [Suspect]
     Active Substance: REGORAFENIB
     Indication: GLIOBLASTOMA
     Dosage: UNK
     Route: 048
     Dates: start: 20201201, end: 20201208
  10. REGORAFENIB. [Suspect]
     Active Substance: REGORAFENIB
     Indication: GLIOBLASTOMA
     Dosage: UNK
     Route: 048
     Dates: start: 20201201, end: 20201208
  11. PEPCID AC [Concomitant]
     Active Substance: FAMOTIDINE
     Dosage: UNK

REACTIONS (1)
  - Lipase increased [Recovered/Resolved]

NARRATIVE: CASE EVENT DATE: 20201208
